FAERS Safety Report 13333174 (Version 1)
Quarter: 2017Q1

REPORT INFORMATION
  Report Type: Spontaneous
  Country: US (occurrence: US)
  Receive Date: 20170314
  Receipt Date: 20170314
  Transmission Date: 20170428
  Serious: No
  Sender: FDA-Public Use
  Company Number: US-GLAXOSMITHKLINE-US2017034609

PATIENT
  Sex: Female

DRUGS (1)
  1. BREO ELLIPTA [Suspect]
     Active Substance: FLUTICASONE FUROATE\VILANTEROL TRIFENATATE
     Indication: MULTIPLE ALLERGIES
     Route: 055

REACTIONS (5)
  - Asthma [Unknown]
  - Underdose [Unknown]
  - Wheezing [Unknown]
  - Dyspnoea [Unknown]
  - Product use issue [Unknown]
